FAERS Safety Report 24459490 (Version 1)
Quarter: 2024Q4

REPORT INFORMATION
  Report Type: Report from Study
  Country: CA (occurrence: CA)
  Receive Date: 20241018
  Receipt Date: 20241018
  Transmission Date: 20250115
  Serious: No
  Sender: ROCHE
  Company Number: CA-ROCHE-3548911

PATIENT
  Age: 77 Year
  Sex: Female

DRUGS (20)
  1. RITUXAN [Suspect]
     Active Substance: RITUXIMAB
     Indication: Ocular pemphigoid
     Dosage: MORE DOSAGE INFO IS DAY 1, 15
     Route: 041
     Dates: start: 20150522
  2. RITUXAN [Suspect]
     Active Substance: RITUXIMAB
     Indication: Pemphigoid
  3. ASPIRIN [Concomitant]
     Active Substance: ASPIRIN
  4. BENADRYL [Concomitant]
     Active Substance: DIPHENHYDRAMINE HYDROCHLORIDE
  5. COD LIVER OIL [Concomitant]
     Active Substance: COD LIVER OIL
  6. CRANBERRY [Concomitant]
     Active Substance: CRANBERRY
  7. LEVOTHYROXINE [Concomitant]
     Active Substance: LEVOTHYROXINE
  8. FLAXSEED [Concomitant]
     Active Substance: FLAX SEED
  9. LIPITOR [Concomitant]
     Active Substance: ATORVASTATIN CALCIUM
  10. LYRICA [Concomitant]
     Active Substance: PREGABALIN
  11. MAGNESIUM [Concomitant]
     Active Substance: MAGNESIUM
  12. MINOCYCLINE [Concomitant]
     Active Substance: MINOCYCLINE HYDROCHLORIDE
  13. PANTOPRAZOLE SODIUM [Concomitant]
     Active Substance: PANTOPRAZOLE SODIUM
  14. PANTOPRAZOLE [Concomitant]
     Active Substance: PANTOPRAZOLE
  15. PRIMROSE OIL [Concomitant]
  16. PROLIA [Concomitant]
     Active Substance: DENOSUMAB
  17. SPIROTONE [Concomitant]
  18. SYNTHROID [Concomitant]
     Active Substance: LEVOTHYROXINE SODIUM
  19. HERBALS\TURMERIC [Concomitant]
     Active Substance: HERBALS\TURMERIC
  20. TYLENOL [Concomitant]
     Active Substance: ACETAMINOPHEN

REACTIONS (1)
  - Condition aggravated [Unknown]
